FAERS Safety Report 6545371-5 (Version None)
Quarter: 2010Q1

REPORT INFORMATION
  Report Type: 
  Country: None (occurrence: None)
  Receive Date: 20100114
  Receipt Date: 20090917
  Transmission Date: 20100710
  Serious: No
  Sender: FDA-Public Use
  Company Number: 2009BM000234

PATIENT
  Age: 14 Year
  Sex: Female
  Weight: 49.8957 kg

DRUGS (1)
  1. KUVAN [Suspect]
     Indication: PHENYLKETONURIA
     Dosage: 600 MG;QD;PO
     Route: 048
     Dates: start: 20090701, end: 20090901

REACTIONS (4)
  - INFLUENZA [None]
  - NASOPHARYNGITIS [None]
  - OROPHARYNGEAL PAIN [None]
  - TONSILLITIS [None]
